FAERS Safety Report 9767021 (Version 1)
Quarter: 2013Q4

REPORT INFORMATION
  Report Type: Spontaneous
  Country: US (occurrence: US)
  Receive Date: 20131217
  Receipt Date: 20131217
  Transmission Date: 20140711
  Serious: No
  Sender: FDA-Public Use
  Company Number: US-GLAXOSMITHKLINE-A1036999A

PATIENT
  Age: 57 Year
  Sex: Male
  Weight: 120.5 kg

DRUGS (4)
  1. VOTRIENT [Suspect]
     Indication: PRODUCT USED FOR UNKNOWN INDICATION
     Dosage: 800MG PER DAY
     Route: 048
  2. SINGULAIR [Concomitant]
     Dosage: 10MG UNKNOWN
     Route: 065
  3. PANTOPRAZOLE [Concomitant]
     Dosage: 40MG UNKNOWN
     Route: 065
  4. OXYCODONE [Concomitant]
     Dosage: 5MG UNKNOWN
     Route: 065

REACTIONS (3)
  - Fatigue [Recovered/Resolved]
  - Constipation [Unknown]
  - Nausea [Unknown]
